FAERS Safety Report 7726068-2 (Version None)
Quarter: 2011Q3

REPORT INFORMATION
  Report Type: 
  Country: None (occurrence: None)
  Receive Date: 20110831
  Receipt Date: 20110818
  Transmission Date: 20111222
  Serious: Yes (Life-Threatening)
  Sender: FDA-Public Use
  Company Number: MPS1-1000360

PATIENT
  Age: 51 Year
  Sex: Female
  Weight: 47 kg

DRUGS (10)
  1. FUROSEMIDE [Concomitant]
  2. AMLODIPINE BESYLATE [Concomitant]
  3. CIPRALAN [Concomitant]
  4. ASPIRIN [Concomitant]
  5. CANDESARTAN CILEXETIL [Concomitant]
  6. ALDURAZYME [Suspect]
     Indication: MUCOPOLYSACCHARIDOSIS I
     Dosage: 26.1 MG, 1X/W, INTRAVENOUS
     Route: 042
     Dates: start: 20071122
  7. LAFUTIDINE [Concomitant]
  8. WARFARIN SODIUM [Concomitant]
  9. CARVEDILOL [Concomitant]
  10. DEXCHLORPHENIRAMINE MALEATE [Concomitant]

REACTIONS (1)
  - PULMONARY ALVEOLAR HAEMORRHAGE [None]
